FAERS Safety Report 9843885 (Version 1)
Quarter: 2013Q4

REPORT INFORMATION
  Report Type: Spontaneous
  Country: US (occurrence: None)
  Receive Date: 20131223
  Receipt Date: 20131223
  Transmission Date: 20140711
  Serious: Yes (Other)
  Sender: FDA-Public Use
  Company Number: 1000048533

PATIENT
  Age: 79 Year
  Sex: Female

DRUGS (11)
  1. LINZESS (LINACLOTIDE) (145 MICROGRAM, CAPSULES) [Suspect]
     Route: 048
     Dates: start: 20130906, end: 20130906
  2. ZOLOFT (SERTRALINE HYDROCHLORIDE) [Concomitant]
  3. CLONAZEPAM [Concomitant]
  4. ARMOUR THYROID (THYROID) [Concomitant]
  5. VITAMIN B12 [Concomitant]
  6. FISH OIL [Concomitant]
  7. CALCIUM [Concomitant]
  8. VITAMIN D [Concomitant]
  9. ZINC [Concomitant]
  10. VITAMIN B COMPLEX [Concomitant]
  11. PROBIOTIC [Concomitant]

REACTIONS (1)
  - Diarrhoea [None]
